FAERS Safety Report 5722901-4 (Version None)
Quarter: 2008Q2

REPORT INFORMATION
  Report Type: 
  Country: None (occurrence: None)
  Receive Date: 20080425
  Receipt Date: 20080412
  Transmission Date: 20081010
  Serious: Yes (Death, Hospitalization, Disabling)
  Sender: FDA-Public Use
  Company Number: OSCN-NO-0711L-0448

PATIENT
  Age: 70 Year
  Sex: Female

DRUGS (4)
  1. OMNISCAN [Suspect]
     Indication: TRANSITIONAL CELL CARCINOMA
     Dosage: 5.1 ML, SINGLE DOSE, I.V.
     Route: 042
     Dates: start: 20040901, end: 20040901
  2. OMNISCAN [Suspect]
     Indication: TRANSITIONAL CELL CARCINOMA
     Dosage: 5.1 ML, SINGLE DOSE, I.V.
     Route: 042
     Dates: start: 20050101, end: 20050101
  3. OMNISCAN [Suspect]
     Indication: TRANSITIONAL CELL CARCINOMA
     Dosage: 5.1 ML, SINGLE DOSE, I.V.
     Route: 042
     Dates: start: 20051001, end: 20051001
  4. OMNISCAN [Suspect]
     Indication: TRANSITIONAL CELL CARCINOMA
     Dosage: 5.1 ML, SINGLE DOSE, I.V.
     Route: 042
     Dates: start: 20060501, end: 20060501

REACTIONS (7)
  - COAGULOPATHY [None]
  - LABORATORY TEST ABNORMAL [None]
  - NEPHROGENIC SYSTEMIC FIBROSIS [None]
  - NOSOCOMIAL INFECTION [None]
  - PERITONITIS [None]
  - SEPTIC SHOCK [None]
  - SKIN HYPERPIGMENTATION [None]
